FAERS Safety Report 4387732-9 (Version None)
Quarter: 2004Q2

REPORT INFORMATION
  Report Type: 
  Country: None (occurrence: None)
  Receive Date: 20040625
  Receipt Date: 20040610
  Transmission Date: 20050107
  Serious: Yes (Hospitalization)
  Sender: FDA-Public Use
  Company Number: 2003AP02192

PATIENT
  Sex: Male

DRUGS (1)
  1. IRESSA [Suspect]
     Indication: LUNG NEOPLASM MALIGNANT
     Dosage: 250 MG DAILY PO
     Route: 048
     Dates: start: 20030410, end: 20030601

REACTIONS (4)
  - METASTASES TO BONE [None]
  - METASTASES TO LIVER [None]
  - PERFORMANCE STATUS DECREASED [None]
  - PNEUMONIA [None]
